FAERS Safety Report 9631308 (Version 1)
Quarter: 2013Q4

REPORT INFORMATION
  Report Type: Spontaneous
  Country: US (occurrence: None)
  Receive Date: 20131017
  Receipt Date: 20131017
  Transmission Date: 20140711
  Serious: Yes (Life-Threatening)
  Sender: FDA-Public Use
  Company Number: None

PATIENT
  Age: 1 Year
  Sex: Female
  Weight: 10.2 kg

DRUGS (3)
  1. CYTARABINE [Suspect]
     Dates: end: 20131010
  2. DAUNORUBICIN [Suspect]
     Dates: end: 20131010
  3. ETOPOSIDE (VP-16) [Suspect]
     Dates: end: 20131010

REACTIONS (8)
  - Swelling [None]
  - Respiratory disorder [None]
  - Bronchial secretion retention [None]
  - Hypotension [None]
  - Acidosis [None]
  - Influenza [None]
  - Sepsis [None]
  - Tumour lysis syndrome [None]
